FAERS Safety Report 8764583 (Version 3)
Quarter: 2014Q2

REPORT INFORMATION
  Report Type: Report from Study
  Country: NL (occurrence: NL)
  Receive Date: 20120831
  Receipt Date: 20140414
  Transmission Date: 20141212
  Serious: Yes (Other)
  Sender: FDA-Public Use
  Company Number: NL-BAXTER-2012BAX015346

PATIENT
  Sex: Female

DRUGS (2)
  1. KIOVIG, 100 MG/ML, OPLOSSING VOOR INFUSIE  (30 G/300 ML) [Suspect]
     Indication: MULTIPLE SCLEROSIS
     Route: 065
     Dates: start: 20111222
  2. KIOVIG, 100 MG/ML, OPLOSSING VOOR INFUSIE  (30 G/300 ML) [Suspect]
     Indication: OFF LABEL USE
     Dosage: 1 VIAL
     Route: 065
     Dates: start: 20120821, end: 20120821

REACTIONS (1)
  - Disease progression [Unknown]
